FAERS Safety Report 10348027 (Version 2)
Quarter: 2015Q3

REPORT INFORMATION
  Report Type: Report from Study
  Country: BR (occurrence: BR)
  Receive Date: 20140729
  Receipt Date: 20150714
  Transmission Date: 20151125
  Serious: Yes (Other)
  Sender: FDA-Public Use
  Company Number: PHHY2014BR092837

PATIENT
  Age: 33 Year
  Sex: Female
  Weight: 90 kg

DRUGS (10)
  1. CARBAMAZEPINE. [Suspect]
     Active Substance: CARBAMAZEPINE
     Indication: INTERVERTEBRAL DISC PROTRUSION
     Route: 065
  2. CERAZETTE [Concomitant]
     Active Substance: DESOGESTREL
     Indication: HAEMORRHAGE
     Dosage: 75 MG, UNK
     Route: 065
  3. OMEPRAZOLE. [Concomitant]
     Active Substance: OMEPRAZOLE
     Indication: GASTRITIS
     Dosage: 20 MG, UNK
     Route: 065
  4. DIOSMIN [Concomitant]
     Active Substance: DIOSMIN
     Indication: THROMBOSIS
     Dosage: 1 DF, QD
     Route: 065
  5. TEGRETOL-XR [Suspect]
     Active Substance: CARBAMAZEPINE
     Indication: SEIZURE
     Dosage: 1 DF (1 TABLET), DAILY
     Route: 048
     Dates: start: 1983
  6. METICORTEN [Concomitant]
     Active Substance: PREDNISONE
     Indication: MULTIPLE SCLEROSIS
     Dosage: 20 MG, UNK
     Route: 065
  7. TEGRETOL-XR [Suspect]
     Active Substance: CARBAMAZEPINE
     Indication: EPILEPSY
  8. TEGRETOL-XR [Suspect]
     Active Substance: CARBAMAZEPINE
     Indication: SYNCOPE
  9. TEGRETOL-XR [Suspect]
     Active Substance: CARBAMAZEPINE
     Indication: INTERVERTEBRAL DISC PROTRUSION
  10. DIOSMIN [Concomitant]
     Active Substance: DIOSMIN
     Indication: THROMBOPHLEBITIS

REACTIONS (6)
  - Syncope [Unknown]
  - Hypoventilation [Recovered/Resolved]
  - Maternal exposure during pregnancy [Unknown]
  - Gait disturbance [Unknown]
  - Epilepsy [Unknown]
  - Visual impairment [Recovered/Resolved]

NARRATIVE: CASE EVENT DATE: 19980523
